FAERS Safety Report 10053261 (Version 1)
Quarter: 2014Q2

REPORT INFORMATION
  Report Type: Spontaneous
  Country: BR (occurrence: BR)
  Receive Date: 20140402
  Receipt Date: 20140402
  Transmission Date: 20141212
  Serious: Yes (Hospitalization, Other)
  Sender: FDA-Public Use
  Company Number: BR-ABBVIE-14P-020-1220307-00

PATIENT
  Sex: Male
  Weight: 56 kg

DRUGS (2)
  1. DEPAKENE [Suspect]
     Indication: BRAIN NEOPLASM
     Dosage: DAILY DOSE: 3000 MILLIGRAM; AT 6AM, 10AM, 2PM, 6PM, 10PM AND 2AM
     Route: 048
  2. DEPAKENE [Suspect]
     Dates: start: 201309

REACTIONS (11)
  - Convulsion [Recovered/Resolved]
  - Musculoskeletal chest pain [Unknown]
  - Pallor [Unknown]
  - Hyperhidrosis [Unknown]
  - Hypersomnia [Unknown]
  - Inappropriate schedule of drug administration [Unknown]
  - Hypoaesthesia [Recovered/Resolved]
  - Dry mouth [Recovered/Resolved]
  - Vomiting [Recovered/Resolved]
  - Nervousness [Unknown]
  - Malaise [Unknown]
